FAERS Safety Report 6367239-X (Version None)
Quarter: 2009Q3

REPORT INFORMATION
  Report Type: 
  Country: None (occurrence: None)
  Receive Date: 20090821
  Receipt Date: 20090601
  Transmission Date: 20100115
  Serious: No
  Sender: FDA-Public Use
  Company Number: 8044798

PATIENT
  Age: 46 Year
  Sex: Female
  Weight: 63.6 kg

DRUGS (11)
  1. CIMZIA [Suspect]
     Indication: CROHN'S DISEASE
     Dosage: 400 MG SC
     Route: 058
     Dates: start: 20081013
  2. OXYCONTIN [Concomitant]
  3. RESTORIL [Concomitant]
  4. TRAZODONE [Concomitant]
  5. NEXIUM [Concomitant]
  6. VYTORIN [Concomitant]
  7. NEURONTIN [Concomitant]
  8. MAXIDEX [Concomitant]
  9. TRAMADOL HCL [Concomitant]
  10. FLEXERIL [Concomitant]
  11. CLOTRIMAZOLE [Concomitant]

REACTIONS (5)
  - CONSTIPATION [None]
  - DECREASED APPETITE [None]
  - FAECALOMA [None]
  - WEIGHT DECREASED [None]
  - WEIGHT INCREASED [None]
